FAERS Safety Report 25206887 (Version 1)
Quarter: 2025Q2

REPORT INFORMATION
  Report Type: Spontaneous
  Country: US (occurrence: US)
  Receive Date: 20250417
  Receipt Date: 20250417
  Transmission Date: 20250717
  Serious: No
  Sender: BAYER
  Company Number: US-BAYER-2025A050250

PATIENT
  Age: 73 Year
  Sex: Female

DRUGS (2)
  1. ALEVE BACK AND MUSCLE PAIN [Suspect]
     Active Substance: NAPROXEN SODIUM
     Indication: Pain
     Route: 048
     Dates: start: 20250404, end: 20250404
  2. ALEVE BACK AND MUSCLE PAIN [Suspect]
     Active Substance: NAPROXEN SODIUM
     Indication: Muscle spasms

REACTIONS (2)
  - Feeling abnormal [Recovered/Resolved]
  - Abdominal discomfort [None]

NARRATIVE: CASE EVENT DATE: 20250404
